FAERS Safety Report 10251619 (Version 1)
Quarter: 2014Q2

REPORT INFORMATION
  Report Type: Spontaneous
  Country: US (occurrence: US)
  Receive Date: 20140623
  Receipt Date: 20140623
  Transmission Date: 20141212
  Serious: No
  Sender: FDA-Public Use
  Company Number: US-009507513-1406USA010059

PATIENT
  Sex: 0

DRUGS (1)
  1. IMPLANON [Suspect]
     Dosage: 1 ROD
     Route: 059

REACTIONS (4)
  - Device deployment issue [Unknown]
  - Device dislocation [Unknown]
  - Medical device complication [Unknown]
  - No adverse event [Unknown]
